FAERS Safety Report 14540700 (Version 1)
Quarter: 2018Q1

REPORT INFORMATION
  Report Type: Spontaneous
  Country: DE (occurrence: DE)
  Receive Date: 20180216
  Receipt Date: 20180216
  Transmission Date: 20180509
  Serious: Yes (Other)
  Sender: FDA-Public Use
  Company Number: DE-OTSUKA-DJ20062030

PATIENT
  Age: 70 Year
  Sex: Female
  Weight: 52 kg

DRUGS (13)
  1. ABILIFY [Suspect]
     Active Substance: ARIPIPRAZOLE
     Indication: SCHIZOPHRENIA
     Dosage: 15 MG, UNK
     Route: 048
     Dates: start: 20060710
  2. AKINETON [Concomitant]
     Active Substance: BIPERIDEN HYDROCHLORIDE
     Indication: EXTRAPYRAMIDAL DISORDER
     Dosage: UNK
     Route: 065
  3. MARCUMAR [Concomitant]
     Active Substance: PHENPROCOUMON
     Dosage: 0.5 DF, UNK
     Route: 048
  4. ATROVENT [Concomitant]
     Active Substance: IPRATROPIUM BROMIDE
     Indication: PRODUCT USED FOR UNKNOWN INDICATION
     Dosage: UNK
     Route: 055
  5. MARCUMAR [Concomitant]
     Active Substance: PHENPROCOUMON
     Indication: DEEP VEIN THROMBOSIS
     Dosage: 0.25 DF, UNK
     Route: 048
     Dates: start: 20060814
  6. MARCUMAR [Concomitant]
     Active Substance: PHENPROCOUMON
     Dosage: 0.75 DF, UNK
     Route: 048
     Dates: start: 20060820
  7. TIMONIL [Concomitant]
     Active Substance: CARBAMAZEPINE
     Indication: PRODUCT USED FOR UNKNOWN INDICATION
     Dosage: 200 MG, UNK
     Route: 065
     Dates: start: 20060804, end: 20060810
  8. MARCUMAR [Concomitant]
     Active Substance: PHENPROCOUMON
     Dosage: 1 DF, UNK
     Route: 048
     Dates: end: 20060807
  9. ESIDRIX [Concomitant]
     Active Substance: HYDROCHLOROTHIAZIDE
     Indication: OEDEMA PERIPHERAL
     Dosage: UNK
     Route: 065
     Dates: start: 20060623
  10. MARCUMAR [Concomitant]
     Active Substance: PHENPROCOUMON
     Dosage: 1 DF, UNK
     Route: 048
  11. SOLIAN [Concomitant]
     Active Substance: AMISULPRIDE
     Indication: SCHIZOPHRENIA
     Dosage: UNK
     Route: 065
  12. BIFITERAL [Concomitant]
     Active Substance: LACTULOSE
     Indication: CONSTIPATION
     Dosage: UNK
     Route: 065
     Dates: start: 20060718
  13. MARCUMAR [Concomitant]
     Active Substance: PHENPROCOUMON
     Dosage: 0.5 DF, UNK
     Route: 048

REACTIONS (2)
  - Coagulopathy [Not Recovered/Not Resolved]
  - Prothrombin time prolonged [Not Recovered/Not Resolved]

NARRATIVE: CASE EVENT DATE: 20060807
